FAERS Safety Report 9130098 (Version 3)
Quarter: 2013Q2

REPORT INFORMATION
  Report Type: Spontaneous
  Country: US (occurrence: US)
  Receive Date: 20130228
  Receipt Date: 20130501
  Transmission Date: 20140414
  Serious: Yes (Hospitalization, Other)
  Sender: FDA-Public Use
  Company Number: US-ALLERGAN-1302876US

PATIENT
  Age: 62 Year
  Sex: Male
  Weight: 89.3 kg

DRUGS (12)
  1. BOTOX? [Suspect]
     Indication: MIGRAINE
     Dosage: UNK, SINGLE
     Route: 030
     Dates: start: 20130207, end: 20130207
  2. BOTOX? [Suspect]
     Dosage: UNK, SINGLE
     Route: 030
     Dates: start: 20120823, end: 20120823
  3. BOTOX? [Suspect]
     Dosage: UNK, SINGLE
     Route: 030
     Dates: start: 20120416, end: 20120416
  4. RELPAX [Concomitant]
     Indication: MIGRAINE
     Dosage: UNK UNK, PRN
     Route: 048
  5. NEXIUM                             /01479302/ [Concomitant]
     Indication: GASTROOESOPHAGEAL REFLUX DISEASE
     Dosage: 1 N/A, QD
     Route: 048
  6. ACCOLATE [Concomitant]
     Indication: ASTHMA PROPHYLAXIS
     Dosage: UNK
  7. ADVAIR [Concomitant]
     Indication: ASTHMA PROPHYLAXIS
     Dosage: UNK
     Route: 055
  8. LIPITOR [Concomitant]
     Indication: BLOOD CHOLESTEROL INCREASED
     Dosage: 1 N/A, QD
     Route: 048
  9. AMITRIPTYLINE [Concomitant]
     Indication: MIGRAINE PROPHYLAXIS
     Dosage: 2 N/A, UNK
     Route: 048
  10. VERAPAMIL [Concomitant]
     Indication: MIGRAINE PROPHYLAXIS
     Dosage: 1 N/A, UNK
     Route: 048
  11. ASTEPRO [Concomitant]
     Indication: HYPERSENSITIVITY
     Dosage: UNK
     Route: 045
  12. ASTELIN                            /00085801/ [Concomitant]
     Indication: HYPERSENSITIVITY
     Dosage: UNK
     Route: 045

REACTIONS (5)
  - Cerebrovascular accident [Recovered/Resolved]
  - Madarosis [Not Recovered/Not Resolved]
  - Rash erythematous [Recovered/Resolved]
  - Rash [Recovered/Resolved]
  - Rash [Recovered/Resolved]
